FAERS Safety Report 11067413 (Version 3)
Quarter: 2015Q2

REPORT INFORMATION
  Report Type: Spontaneous
  Country: US (occurrence: US)
  Receive Date: 20150427
  Receipt Date: 20150518
  Transmission Date: 20150821
  Serious: Yes (Other)
  Sender: FDA-Public Use
  Company Number: US-009507513-1504USA021293

PATIENT
  Age: 67 Year
  Sex: Female

DRUGS (1)
  1. ASMANEX [Suspect]
     Active Substance: MOMETASONE FUROATE
     Indication: CHRONIC OBSTRUCTIVE PULMONARY DISEASE
     Dosage: 2 PUFFS, TWICE DAILY
     Dates: start: 20070618, end: 20150420

REACTIONS (7)
  - Product quality issue [Unknown]
  - Limb injury [Unknown]
  - Wrist fracture [Recovering/Resolving]
  - Pain in extremity [Unknown]
  - Drug dose omission [Unknown]
  - Discomfort [Unknown]
  - Drug administration error [Unknown]

NARRATIVE: CASE EVENT DATE: 201502
